FAERS Safety Report 10058642 (Version 1)
Quarter: 2014Q2

REPORT INFORMATION
  Report Type: Spontaneous
  Country: AU (occurrence: AU)
  Receive Date: 20140404
  Receipt Date: 20140404
  Transmission Date: 20141212
  Serious: Yes (Other)
  Sender: FDA-Public Use
  Company Number: AU-PFIZER INC-2014094535

PATIENT
  Age: 87 Year
  Sex: Male

DRUGS (2)
  1. DILANTIN [Suspect]
     Dosage: 300 MG, UNK
  2. DILANTIN [Suspect]
     Dosage: 330 MG, UNK

REACTIONS (2)
  - Convulsion [Unknown]
  - Drug level above therapeutic [Unknown]
